FAERS Safety Report 24240795 (Version 1)
Quarter: 2024Q3

REPORT INFORMATION
  Report Type: Spontaneous
  Country: US (occurrence: US)
  Receive Date: 20240823
  Receipt Date: 20240823
  Transmission Date: 20241017
  Serious: No
  Sender: ABBVIE
  Company Number: US-ABBVIE-5884712

PATIENT

DRUGS (1)
  1. LINZESS [Suspect]
     Active Substance: LINACLOTIDE
     Indication: Product used for unknown indication
     Dosage: DOSE:145
     Route: 048

REACTIONS (6)
  - Hypophagia [Unknown]
  - Abnormal loss of weight [Unknown]
  - Gastroenteritis eosinophilic [Unknown]
  - Irritable bowel syndrome [Unknown]
  - Productive cough [Unknown]
  - Multiple allergies [Unknown]
